FAERS Safety Report 8708767 (Version 4)
Quarter: 2012Q4

REPORT INFORMATION
  Report Type: Report from Study
  Country: US (occurrence: US)
  Receive Date: 20120806
  Receipt Date: 20120831
  Transmission Date: 20130627
  Serious: Yes (Hospitalization, Other)
  Sender: FDA-Public Use
  Company Number: US-ABBOTT-12P-163-0962214-00

PATIENT
  Age: 29 Year
  Sex: Female

DRUGS (8)
  1. HUMIRA 40 MG/0.8 ML PEN [Suspect]
     Indication: CROHN^S DISEASE
     Dates: start: 2008, end: 201007
  2. HUMIRA 40 MG/0.8 ML PEN [Suspect]
     Dates: start: 201108, end: 201204
  3. HUMIRA 40 MG/0.8 ML PEN [Suspect]
     Dates: start: 201204
  4. IMURAN [Concomitant]
     Indication: CROHN^S DISEASE
     Dosage: 3 pills daily
  5. COLESTIPOL [Concomitant]
     Indication: BLOOD CHOLESTEROL INCREASED
     Dosage: At bedtime
     Route: 048
  6. COLESTIPOL [Concomitant]
     Indication: CROHN^S DISEASE
  7. HYOSCYAMINE SULFATE [Concomitant]
     Indication: CROHN^S DISEASE
     Route: 048
  8. IMODIUM [Concomitant]
     Indication: DIARRHOEA

REACTIONS (9)
  - Anal fistula [Recovering/Resolving]
  - Anal fistula [Recovering/Resolving]
  - Ileectomy [Unknown]
  - Crohn^s disease [Unknown]
  - Crohn^s disease [Unknown]
  - Crying [Unknown]
  - Injection site pain [Unknown]
  - Abdominal pain upper [Recovering/Resolving]
  - Diarrhoea [Recovering/Resolving]
